FAERS Safety Report 11787699 (Version 2)
Quarter: 2015Q4

REPORT INFORMATION
  Report Type: Spontaneous
  Country: IT (occurrence: IT)
  Receive Date: 20151130
  Receipt Date: 20151221
  Transmission Date: 20160305
  Serious: Yes (Other)
  Sender: FDA-Public Use
  Company Number: IT-PFIZER INC-2015410600

PATIENT
  Age: 25 Year
  Sex: Male

DRUGS (5)
  1. SERTRALINE HCL [Suspect]
     Active Substance: SERTRALINE HYDROCHLORIDE
     Dosage: UNK
     Route: 048
     Dates: start: 20151102, end: 20151102
  2. OLANZAPINA ACTAVIS [Suspect]
     Active Substance: OLANZAPINE
     Dosage: 10 MG, 1X/DAY
     Route: 048
     Dates: start: 20151102, end: 20151102
  3. HALDOL [Suspect]
     Active Substance: HALOPERIDOL
     Dosage: 2 ML, 1X/DAY
     Route: 048
     Dates: start: 20151102, end: 20151102
  4. QUETIAPINA TEVA ITALIA [Suspect]
     Active Substance: QUETIAPINE
     Dosage: 300 MG, 1X/DAY
     Route: 048
     Dates: start: 20151102, end: 20151102
  5. LORAZEPAM ABC [Suspect]
     Active Substance: LORAZEPAM
     Dosage: 2.5 MG, 1X/DAY
     Route: 048
     Dates: start: 20151102, end: 20151102

REACTIONS (4)
  - Dystonia [Unknown]
  - Self injurious behaviour [Unknown]
  - Dyskinesia [Unknown]
  - Drug abuse [Unknown]

NARRATIVE: CASE EVENT DATE: 20151102
